FAERS Safety Report 8600672-1 (Version None)
Quarter: 2012Q3

REPORT INFORMATION
  Report Type: 
  Country: None (occurrence: None)
  Receive Date: 20120817
  Receipt Date: 20120814
  Transmission Date: 20120928
  Serious: Yes (Death, Hospitalization, Other)
  Sender: FDA-Public Use
  Company Number: US-ELI_LILLY_AND_COMPANY-US201208004400

PATIENT
  Age: 73 Year
  Sex: Female

DRUGS (11)
  1. QUINIDINE GLUCONATE [Suspect]
     Dosage: 800 MG, OTHER
     Route: 042
  2. VANCOMYCIN HCL [Concomitant]
     Dosage: 750 MG, BID
     Route: 042
  3. PIPERACILLIN SODIUM W/TAZOBACTAM [Concomitant]
     Dosage: 3.375 G, EVERY 6 HRS
     Route: 042
  4. TRIMETHOPRIM AND SULFAMETHOXAZOLE DS [Concomitant]
     Dosage: UNK MG, BID
     Route: 048
  5. ESOMEPRAZOLE [Concomitant]
     Dosage: 40 MG, QD
     Route: 048
  6. PROPRANOLOL [Concomitant]
     Dosage: 80 MG, QD
     Route: 048
  7. CLINDAMYCIN [Concomitant]
     Dosage: 900 MG, EVERY 8 HRS
     Route: 042
  8. MEROPENEM [Concomitant]
     Dosage: 1500 MG, EVERY 8 HRS
     Route: 042
  9. QUINIDINE GLUCONATE [Suspect]
     Dosage: 0.02 MG/KG, EVERY HOUR
     Route: 042
  10. TACROLIMUS [Concomitant]
     Dosage: 40 MG, QD
     Route: 048
  11. URSODIOL [Concomitant]
     Dosage: 250 MG, EVERY 6 HRS
     Route: 048

REACTIONS (3)
  - MULTI-ORGAN FAILURE [None]
  - ELECTROCARDIOGRAM QT PROLONGED [None]
  - SEPSIS [None]
